FAERS Safety Report 8017544-6 (Version None)
Quarter: 2011Q4

REPORT INFORMATION
  Report Type: 
  Country: None (occurrence: None)
  Receive Date: 20111228
  Receipt Date: 20111228
  Transmission Date: 20120403
  Serious: Yes (Other)
  Sender: FDA-Public Use
  Company Number: None

PATIENT
  Age: 83 Year
  Sex: Female
  Weight: 61.2356 kg

DRUGS (1)
  1. FENOFIBRATE [Suspect]

REACTIONS (2)
  - LIVER INJURY [None]
  - LIVER FUNCTION TEST ABNORMAL [None]
